FAERS Safety Report 10156918 (Version 1)
Quarter: 2014Q2

REPORT INFORMATION
  Report Type: Spontaneous
  Country: US (occurrence: US)
  Receive Date: 20140507
  Receipt Date: 20140507
  Transmission Date: 20141212
  Serious: No
  Sender: FDA-Public Use
  Company Number: US-009507513-1405USA000361

PATIENT
  Sex: Female

DRUGS (2)
  1. NUVARING [Suspect]
     Dosage: UNK
     Dates: start: 20140321, end: 20140404
  2. NUVARING [Suspect]
     Dosage: UNK
     Dates: start: 20140411, end: 20140425

REACTIONS (4)
  - Withdrawal bleed [Unknown]
  - Withdrawal bleed [Unknown]
  - Incorrect drug administration duration [Unknown]
  - Incorrect drug administration duration [Unknown]
